FAERS Safety Report 14956971 (Version 1)
Quarter: 2018Q2

REPORT INFORMATION
  Report Type: Report from Study
  Country: JP (occurrence: JP)
  Receive Date: 20180531
  Receipt Date: 20180531
  Transmission Date: 20180711
  Serious: Yes (Death, Hospitalization, Other)
  Sender: FDA-Public Use
  Company Number: JP-B.I. PHARMACEUTICALS,INC./RIDGEFIELD-2016-BI-20808NB

PATIENT
  Age: 71 Year
  Sex: Male
  Weight: 48.8 kg

DRUGS (1)
  1. OFEV [Suspect]
     Active Substance: NINTEDANIB
     Indication: IDIOPATHIC PULMONARY FIBROSIS
     Route: 065
     Dates: start: 20150915, end: 20160430

REACTIONS (5)
  - Death [Fatal]
  - Idiopathic pulmonary fibrosis [Not Recovered/Not Resolved]
  - Respiratory failure [Unknown]
  - Pneumothorax spontaneous [Unknown]
  - Diarrhoea [Recovered/Resolved]

NARRATIVE: CASE EVENT DATE: 20160109
